FAERS Safety Report 24565717 (Version 1)
Quarter: 2024Q4

REPORT INFORMATION
  Report Type: Report from Study
  Country: IN (occurrence: IN)
  Receive Date: 20241030
  Receipt Date: 20241030
  Transmission Date: 20250115
  Serious: Yes (Hospitalization)
  Sender: PFIZER
  Company Number: IN-TAKEDA-2024TUS086920

PATIENT
  Age: 71 Year
  Sex: Female

DRUGS (2)
  1. BRENTUXIMAB VEDOTIN [Suspect]
     Active Substance: BRENTUXIMAB VEDOTIN
     Indication: Hodgkin^s disease recurrent
     Dosage: 138 MILLIGRAM, UNSPECIFIED FREQUENCY
     Route: 042
  2. BRENTUXIMAB VEDOTIN [Suspect]
     Active Substance: BRENTUXIMAB VEDOTIN
     Dosage: 100 MILLIGRAM, UNSPECIFIED FREQUENCY
     Route: 042

REACTIONS (4)
  - Oxygen saturation decreased [Unknown]
  - Cough [Unknown]
  - Malaise [Unknown]
  - Hypersensitivity [Unknown]
